FAERS Safety Report 17230167 (Version 1)
Quarter: 2020Q1

REPORT INFORMATION
  Report Type: Spontaneous
  Country: US (occurrence: US)
  Receive Date: 20200103
  Receipt Date: 20200103
  Transmission Date: 20200409
  Serious: No
  Sender: FDA-Public Use
  Company Number: US-BAYER-2020-001353

PATIENT
  Age: 74 Year
  Sex: Female

DRUGS (3)
  1. ESTRADIOL HEMIHYDRATE [Suspect]
     Active Substance: ESTRADIOL HEMIHYDRATE
     Indication: MIGRAINE WITH AURA
     Route: 062
  2. RANITIDINE. [Concomitant]
     Active Substance: RANITIDINE
  3. ULTRACET [Concomitant]
     Active Substance: ACETAMINOPHEN\TRAMADOL HYDROCHLORIDE

REACTIONS (5)
  - Therapeutic product ineffective for unapproved indication [None]
  - Product use in unapproved indication [None]
  - Off label use [None]
  - Tunnel vision [None]
  - Headache [None]
